FAERS Safety Report 20071212 (Version 6)
Quarter: 2025Q2

REPORT INFORMATION
  Report Type: Spontaneous
  Country: PK (occurrence: PK)
  Receive Date: 20211115
  Receipt Date: 20250616
  Transmission Date: 20250717
  Serious: Yes (Other)
  Sender: AMGEN
  Company Number: PK-PFIZER INC-2021337168

PATIENT
  Age: 26 Year
  Sex: Male

DRUGS (12)
  1. ENBREL [Suspect]
     Active Substance: ETANERCEPT
     Indication: Ankylosing spondylitis
     Dosage: 50 MG, WEEKLY
     Route: 058
     Dates: start: 2008
  2. ENBREL [Suspect]
     Active Substance: ETANERCEPT
     Dosage: 50 MG, WEEKLY
     Route: 058
     Dates: start: 20210326
  3. ENBREL [Suspect]
     Active Substance: ETANERCEPT
     Dosage: 50 MG, WEEKLY (ONCE A WEEK)
     Route: 058
     Dates: start: 20211109
  4. ENBREL [Suspect]
     Active Substance: ETANERCEPT
     Route: 065
  5. Annuva [Concomitant]
  6. Indrop d [Concomitant]
     Dosage: 1 DF, MONTHLY (TAKE 1 CAPSULE ONCE A MONTH AFTER MEAL, CONTINUE)
  7. Indrop d [Concomitant]
     Dates: start: 20211102
  8. Ossobon d [Concomitant]
  9. Ossobon d [Concomitant]
     Dates: start: 20211102
  10. Risek [Concomitant]
  11. Risek [Concomitant]
  12. Sunny d [Concomitant]

REACTIONS (10)
  - Haematochezia [Recovered/Resolved]
  - Spinal disorder [Unknown]
  - Back pain [Unknown]
  - Fatigue [Unknown]
  - Musculoskeletal stiffness [Recovering/Resolving]
  - Lethargy [Unknown]
  - Anxiety [Unknown]
  - Palpitations [Unknown]
  - Pain [Unknown]
  - Off label use [Unknown]
